FAERS Safety Report 11004021 (Version 1)
Quarter: 2015Q2

REPORT INFORMATION
  Report Type: Spontaneous
  Country: US (occurrence: None)
  Receive Date: 20150408
  Receipt Date: 20150408
  Transmission Date: 20150821
  Serious: No
  Sender: FDA-Public Use
  Company Number: None

PATIENT
  Age: 50 Year
  Sex: Male
  Weight: 81.65 kg

DRUGS (1)
  1. TRANSDERM SCOP [Suspect]
     Active Substance: SCOPOLAMINE
     Indication: MOTION SICKNESS
     Dosage: TWO PATCHES ONE EVERY 72 HRS APPLIED TO A SURFACE, USUALLY THE SKIN
     Route: 062
     Dates: start: 20150319, end: 20150323

REACTIONS (2)
  - Oedema [None]
  - Pain in extremity [None]

NARRATIVE: CASE EVENT DATE: 20150320
